FAERS Safety Report 6570790-0 (Version None)
Quarter: 2010Q1

REPORT INFORMATION
  Report Type: 
  Country: None (occurrence: None)
  Receive Date: 20100202
  Receipt Date: 20100202
  Transmission Date: 20100710
  Serious: No
  Sender: FDA-Public Use
  Company Number: None

PATIENT
  Age: 77 Year
  Sex: Male
  Weight: 83.9154 kg

DRUGS (4)
  1. LEVAQUIN [Suspect]
     Indication: PULMONARY CONGESTION
     Dosage: 10 TABLETS 1 PER DAY ORAL
     Route: 048
     Dates: start: 20090929
  2. LEVAQUIN [Suspect]
     Indication: PULMONARY CONGESTION
     Dosage: 10 TABLETS 1 PER DAY ORAL
     Route: 048
     Dates: start: 20090930
  3. LEVAQUIN [Suspect]
     Indication: PULMONARY CONGESTION
     Dosage: 10 TABLETS 1 PER DAY ORAL
     Route: 048
     Dates: start: 20091001
  4. LEVAQUIN [Suspect]
     Indication: PULMONARY CONGESTION
     Dosage: 10 TABLETS 1 PER DAY ORAL
     Route: 048
     Dates: start: 20091002

REACTIONS (4)
  - ARTHRALGIA [None]
  - MEMORY IMPAIRMENT [None]
  - PRODUCT QUALITY ISSUE [None]
  - PRURITUS [None]
